FAERS Safety Report 22045958 (Version 2)
Quarter: 2023Q2

REPORT INFORMATION
  Report Type: Report from Study
  Country: US (occurrence: US)
  Receive Date: 20230228
  Receipt Date: 20230506
  Transmission Date: 20230721
  Serious: No
  Sender: FDA-Public Use
  Company Number: US-002147023-NVSC2023US046207

PATIENT
  Sex: Female
  Weight: 80.739 kg

DRUGS (9)
  1. METHOTREXATE [Suspect]
     Active Substance: METHOTREXATE
     Indication: Psoriatic arthropathy
     Dosage: UNK
     Route: 065
  2. METHOTREXATE [Suspect]
     Active Substance: METHOTREXATE
     Indication: Psoriasis
  3. CLOBETASOL PROPIONATE [Suspect]
     Active Substance: CLOBETASOL PROPIONATE
     Indication: Psoriasis
     Dosage: 05.5 % (FOAM)
     Route: 061
  4. HYDROCORTISONE [Suspect]
     Active Substance: HYDROCORTISONE
     Indication: Psoriasis
     Dosage: 2.5 %
     Route: 061
  5. TRIAMCINOLONE [Suspect]
     Active Substance: TRIAMCINOLONE
     Indication: Psoriasis
     Dosage: 0.1 % (TRIAMCINOLONE ACETONIDE)
     Route: 061
  6. ATORVASTATIN [Suspect]
     Active Substance: ATORVASTATIN
     Indication: Psoriasis
     Dosage: 20 MG
     Route: 048
  7. COSENTYX [Suspect]
     Active Substance: SECUKINUMAB
     Indication: Psoriasis
     Dosage: 300 MG (150 MG/ML (2 PENS)
     Route: 058
  8. ALCOHOL [Concomitant]
     Active Substance: ALCOHOL
     Indication: Psoriasis
     Dosage: UNK
     Route: 065
  9. TRIAMCINOLONE [Suspect]
     Active Substance: TRIAMCINOLONE
     Indication: Psoriasis
     Dosage: 0.1 % (TRIAMCINOLONE ACETONIDE)
     Route: 061

REACTIONS (2)
  - Treatment failure [Unknown]
  - Psoriasis [Unknown]
